FAERS Safety Report 12315321 (Version 1)
Quarter: 2016Q2

REPORT INFORMATION
  Report Type: Spontaneous
  Country: IT (occurrence: IT)
  Receive Date: 20160428
  Receipt Date: 20160428
  Transmission Date: 20160815
  Serious: Yes (Other)
  Sender: FDA-Public Use
  Company Number: IT-TEVA-655366ACC

PATIENT
  Age: 22 Year
  Sex: Female

DRUGS (3)
  1. CIQORIN - 50 MG CAPSULE MOLLI - TEVA ITALIA S.R.L. [Suspect]
     Active Substance: CYCLOSPORINE
     Indication: SYSTEMIC LUPUS ERYTHEMATOSUS
     Dosage: 150 MILLIGRAM DAILY;
     Route: 048
     Dates: start: 20160304, end: 20160405
  2. UNIPRIL - 2,5 MG COMPRESSE [Concomitant]
     Indication: HYPERTENSION
     Dosage: 2.5 MG
     Route: 048
     Dates: start: 20160102, end: 20160320
  3. DELTACORTENE - 25 MG COMPRESSE [Concomitant]
     Indication: PRODUCT USED FOR UNKNOWN INDICATION
     Dosage: 12.5 MG
     Route: 048
     Dates: start: 20160201, end: 20160320

REACTIONS (1)
  - Palmar-plantar erythrodysaesthesia syndrome [Unknown]

NARRATIVE: CASE EVENT DATE: 20160320
